FAERS Safety Report 6759179-9 (Version None)
Quarter: 2010Q2

REPORT INFORMATION
  Report Type: 
  Country: None (occurrence: None)
  Receive Date: 20100607
  Receipt Date: 20100526
  Transmission Date: 20101027
  Serious: Yes (Other)
  Sender: FDA-Public Use
  Company Number: US-MYLANLABS-2010S1006711

PATIENT
  Age: 83 Year
  Sex: Female

DRUGS (17)
  1. FENTANYL-100 [Suspect]
     Indication: BACK PAIN
     Dosage: Q72H
     Route: 062
     Dates: start: 20100301, end: 20100401
  2. FENTANYL-100 [Suspect]
     Route: 062
     Dates: start: 20100401
  3. OXYCODONE AND ACETAMINOPHEN [Concomitant]
  4. TRAMADOL [Concomitant]
  5. EFFEXOR [Concomitant]
  6. NIASPAN [Concomitant]
  7. DIOVAN HCT [Concomitant]
  8. PRAVASTATIN [Concomitant]
  9. AMBIEN [Concomitant]
  10. BONIVA [Concomitant]
  11. CALCIUM CARBONATE [Concomitant]
  12. MAGNESIUM [Concomitant]
  13. ZINC [Concomitant]
  14. OSCAL /00108001/ [Concomitant]
  15. VITAMIN B-12 [Concomitant]
  16. L-LYSINE /00919901/ [Concomitant]
  17. FISH OIL [Concomitant]

REACTIONS (5)
  - DRUG DEPENDENCE [None]
  - MUSCLE SPASMS [None]
  - MUSCULOSKELETAL STIFFNESS [None]
  - PARAESTHESIA [None]
  - RESTLESSNESS [None]
